FAERS Safety Report 14257245 (Version 3)
Quarter: 2018Q1

REPORT INFORMATION
  Report Type: Report from Study
  Country: GB (occurrence: GB)
  Receive Date: 20171206
  Receipt Date: 20180301
  Transmission Date: 20180508
  Serious: Yes (Other)
  Sender: FDA-Public Use
  Company Number: PHHY2017GB173889

PATIENT
  Sex: Male

DRUGS (1)
  1. EXTAVIA [Suspect]
     Active Substance: INTERFERON BETA-1B
     Indication: MULTIPLE SCLEROSIS
     Dosage: 250 MCG (8 MIU) IN 1ML QOD
     Route: 058
     Dates: start: 20111007

REACTIONS (6)
  - Lower respiratory tract infection [Not Recovered/Not Resolved]
  - Dyspnoea [Unknown]
  - Injection site discolouration [Unknown]
  - General physical health deterioration [Unknown]
  - Poisoning [Unknown]
  - Prescribed underdose [Unknown]
